FAERS Safety Report 11593632 (Version 1)
Quarter: 2015Q4

REPORT INFORMATION
  Report Type: Spontaneous
  Country: US (occurrence: US)
  Receive Date: 20151005
  Receipt Date: 20151005
  Transmission Date: 20160304
  Serious: Yes (Disabling, Other)
  Sender: FDA-Public Use
  Company Number: US-JNJFOC-20151000201

PATIENT
  Age: 28 Year
  Sex: Male

DRUGS (18)
  1. ETANERCEPT [Suspect]
     Active Substance: ETANERCEPT
     Indication: ARTHRITIS
     Route: 065
  2. OMEPRAZOLE. [Concomitant]
     Active Substance: OMEPRAZOLE
     Route: 048
  3. DIFLUPREDNATE [Concomitant]
     Active Substance: DIFLUPREDNATE
     Route: 047
  4. GOLIMUMAB [Suspect]
     Active Substance: GOLIMUMAB
     Indication: ARTHRITIS
     Route: 058
  5. CLONAZEPAM. [Concomitant]
     Active Substance: CLONAZEPAM
     Indication: ANXIETY
     Route: 048
  6. LEFLUNOMIDE. [Suspect]
     Active Substance: LEFLUNOMIDE
     Indication: ARTHRITIS
     Route: 065
  7. CYCLOSPORIN A [Suspect]
     Active Substance: CYCLOSPORINE
     Indication: JUVENILE IDIOPATHIC ARTHRITIS
     Route: 065
  8. CERTOLIZUMAB [Suspect]
     Active Substance: CERTOLIZUMAB
     Indication: ARTHRITIS
     Route: 065
  9. ATROPINE. [Concomitant]
     Active Substance: ATROPINE
     Route: 047
  10. METHYLPREDNISOLONE. [Concomitant]
     Active Substance: METHYLPREDNISOLONE
     Route: 065
  11. FOLIC ACID. [Concomitant]
     Active Substance: FOLIC ACID
     Route: 065
  12. ATOVAQUONE. [Concomitant]
     Active Substance: ATOVAQUONE
     Route: 048
  13. AMPHETAMINE DEXAMPHETAMINE SLOW RELEASE [Concomitant]
     Route: 048
  14. SENNOSIDE (UNSPECIFIED) [Concomitant]
     Route: 065
  15. CALCIUM [Concomitant]
     Active Substance: CALCIUM
     Route: 065
  16. VITAMIN D [Concomitant]
     Active Substance: CHOLECALCIFEROL
     Route: 065
  17. METHOTREXATE [Suspect]
     Active Substance: METHOTREXATE
     Indication: ARTHRITIS
     Route: 058
  18. DOCUSATE [Concomitant]
     Active Substance: DOCUSATE
     Route: 065

REACTIONS (4)
  - Arthritis bacterial [Recovered/Resolved]
  - Arthritis fungal [Recovered/Resolved]
  - Fusarium infection [Recovered/Resolved]
  - Drug ineffective for unapproved indication [Unknown]
